FAERS Safety Report 8346276-X (Version None)
Quarter: 2012Q2

REPORT INFORMATION
  Report Type: 
  Country: None (occurrence: None)
  Receive Date: 20120509
  Receipt Date: 20120504
  Transmission Date: 20120825
  Serious: Yes (Death, Other)
  Sender: FDA-Public Use
  Company Number: FR-ASTELLAS-2012EU003290

PATIENT
  Age: 17 Year
  Sex: Male
  Weight: 76 kg

DRUGS (1)
  1. MICAFUNGIN INJECTION [Suspect]
     Indication: FUNGAL INFECTION
     Dosage: UNK
     Route: 065
     Dates: end: 20120119

REACTIONS (5)
  - DISEASE PROGRESSION [None]
  - PYREXIA [None]
  - DRUG INEFFECTIVE [None]
  - DEATH [None]
  - CAPILLARY LEAK SYNDROME [None]
